FAERS Safety Report 7272038-0 (Version None)
Quarter: 2011Q1

REPORT INFORMATION
  Report Type: 
  Country: None (occurrence: None)
  Receive Date: 20110127
  Receipt Date: 20110124
  Transmission Date: 20110831
  Serious: Yes (Hospitalization)
  Sender: FDA-Public Use
  Company Number: CIP10003047

PATIENT
  Age: 71 Year
  Sex: Male

DRUGS (6)
  1. DEPAS (ETIZOLAM) [Concomitant]
  2. BUP-4 (PROPIVERNIE HYDROCHLORIDE) [Concomitant]
  3. ACTONEL [Suspect]
     Indication: OSTEOPOROSIS
     Dosage: 2.5 MG, UNKNOWN REGIMEN, ORAL
     Route: 048
     Dates: end: 20101124
  4. MAGMITT (MAGNESIUM OXIDE) [Concomitant]
  5. TATHION (GLUTATHIONE) [Concomitant]
  6. BENET (RISEDRONATE SODIUM) TABLET, 17.5MG [Suspect]
     Indication: OSTEOPOROSIS
     Dosage: 17.5 ONCE WEEKLY, ORAL
     Route: 048
     Dates: start: 20100701, end: 20101101

REACTIONS (5)
  - FEELING ABNORMAL [None]
  - SENSORY DISTURBANCE [None]
  - PAIN IN EXTREMITY [None]
  - FEMUR FRACTURE [None]
  - STRESS FRACTURE [None]
